FAERS Safety Report 6675529-6 (Version None)
Quarter: 2010Q2

REPORT INFORMATION
  Report Type: 
  Country: None (occurrence: None)
  Receive Date: 20100409
  Receipt Date: 20100331
  Transmission Date: 20101027
  Serious: Yes (Hospitalization, Other)
  Sender: FDA-Public Use
  Company Number: FR-BRISTOL-MYERS SQUIBB COMPANY-15047053

PATIENT
  Age: 66 Year
  Sex: Male

DRUGS (14)
  1. SPRYCEL [Suspect]
     Indication: CHRONIC MYELOID LEUKAEMIA
     Dates: start: 20080226, end: 20080401
  2. GLEEVEC [Suspect]
     Indication: CHRONIC MYELOID LEUKAEMIA
     Dates: start: 20061215, end: 20080225
  3. TASIGNA [Suspect]
     Indication: CHRONIC MYELOID LEUKAEMIA
     Dates: start: 20080424, end: 20100209
  4. DILTIAZEM [Concomitant]
  5. TAREG [Concomitant]
  6. BISOPROLOL FUMARATE [Concomitant]
  7. LASIX [Concomitant]
  8. ENALAPRIL MALEATE [Concomitant]
  9. SIMVASTATIN [Concomitant]
  10. ESIDRIX [Concomitant]
  11. KARDEGIC [Concomitant]
  12. GLUCOPHAGE [Concomitant]
  13. BYETTA [Concomitant]
  14. DIAMICRON [Concomitant]

REACTIONS (3)
  - CARDIAC FAILURE [None]
  - PLEURAL EFFUSION [None]
  - RENAL CANCER [None]
